FAERS Safety Report 9654425 (Version 2)
Quarter: 2013Q4

REPORT INFORMATION
  Report Type: Spontaneous
  Country: JP (occurrence: JP)
  Receive Date: 20131029
  Receipt Date: 20131029
  Transmission Date: 20140711
  Serious: Yes (Hospitalization)
  Sender: FDA-Public Use
  Company Number: PHHY2013JP108896

PATIENT
  Age: 1 Year
  Sex: 0

DRUGS (2)
  1. TEGRETOL [Suspect]
     Dosage: 45 MG, DAILY(PRESCRIBED DOSE)
     Route: 048
  2. TEGRETOL [Suspect]
     Dosage: 450 MG, DAILY (DISPENSED DOSE)
     Route: 048

REACTIONS (1)
  - Drug dispensing error [Unknown]
